FAERS Safety Report 9422006 (Version 2)
Quarter: 2013Q4

REPORT INFORMATION
  Report Type: Spontaneous
  Country: FR (occurrence: FR)
  Receive Date: 20130726
  Receipt Date: 20131114
  Transmission Date: 20140711
  Serious: Yes (Hospitalization, Other)
  Sender: FDA-Public Use
  Company Number: FR-JNJFOC-20130711348

PATIENT
  Age: 47 Year
  Sex: Male

DRUGS (8)
  1. REMICADE [Suspect]
     Indication: ANKYLOSING SPONDYLITIS
     Route: 042
  2. REMICADE [Suspect]
     Indication: ANKYLOSING SPONDYLITIS
     Dosage: 6TH INFUSION
     Route: 042
     Dates: start: 20130626
  3. DAFALGAN CODEINE [Concomitant]
     Route: 065
  4. VENTOLIN [Concomitant]
     Route: 065
  5. SERETIDE [Concomitant]
     Route: 065
  6. NUROFEN [Concomitant]
     Route: 065
  7. DICLOFENAC [Concomitant]
     Route: 065
  8. VITAMIN C [Concomitant]
     Route: 065

REACTIONS (2)
  - Convulsion [Recovered/Resolved]
  - Intervertebral disc degeneration [Unknown]
